FAERS Safety Report 21507591 (Version 1)
Quarter: 2022Q4

REPORT INFORMATION
  Report Type: Spontaneous
  Country: US (occurrence: None)
  Receive Date: 20221025
  Receipt Date: 20221025
  Transmission Date: 20230113
  Serious: Yes (Other)
  Sender: FDA-Public Use
  Company Number: None

PATIENT
  Age: 25 Year
  Sex: Female
  Weight: 62.6 kg

DRUGS (2)
  1. GAMMAGARD LIQUID [Suspect]
     Active Substance: HUMAN IMMUNOGLOBULIN G
     Dosage: FREQUENCY : MONTHLY;?
     Route: 042
     Dates: start: 20200520, end: 20220921
  2. GAMMAGARD LIQUID [Suspect]
     Active Substance: HUMAN IMMUNOGLOBULIN G
     Dosage: OTHER FREQUENCY : EVERY 4 WEEKS;?
     Route: 042
     Dates: start: 20200520, end: 20220921

REACTIONS (6)
  - Oropharyngeal pain [None]
  - Malaise [None]
  - Pallor [None]
  - Infusion related reaction [None]
  - Chest discomfort [None]
  - Throat tightness [None]

NARRATIVE: CASE EVENT DATE: 20220920
